FAERS Safety Report 8798959 (Version 1)
Quarter: 2012Q4

REPORT INFORMATION
  Report Type: Spontaneous
  Country: US (occurrence: None)
  Receive Date: 20120918
  Receipt Date: 20120918
  Transmission Date: 20130627
  Serious: Yes (Other)
  Sender: FDA-Public Use
  Company Number: None

PATIENT
  Age: 47 Year
  Sex: Female
  Weight: 59.88 kg

DRUGS (4)
  1. VENLAFAXINE [Suspect]
     Indication: ANXIETY DISORDER
     Route: 048
     Dates: start: 20090401, end: 20120917
  2. VENLAFAXINE [Suspect]
  3. TAMOXIFEN [Concomitant]
  4. TRENTAL [Concomitant]

REACTIONS (11)
  - Withdrawal syndrome [None]
  - Vertigo [None]
  - Influenza like illness [None]
  - Myalgia [None]
  - Feeling abnormal [None]
  - Asthenia [None]
  - Fatigue [None]
  - Sensory disturbance [None]
  - Paraesthesia [None]
  - Dizziness [None]
  - Balance disorder [None]
